FAERS Safety Report 8948654 (Version 4)
Quarter: 2012Q4

REPORT INFORMATION
  Report Type: 
  Country: US (occurrence: US)
  Receive Date: 20121206
  Receipt Date: 20121226
  Transmission Date: 20130627
  Serious: Yes (Other)
  Sender: FDA-Public Use
  Company Number: US-JNJFOC-20121114141

PATIENT
  Sex: Female
  Weight: 57.61 kg

DRUGS (7)
  1. NUCYNTA [Suspect]
     Indication: BACK PAIN
     Dosage: every 6 hours
     Route: 048
     Dates: start: 201009
  2. NUCYNTA [Suspect]
     Indication: POST-TRAUMATIC PAIN
     Dosage: every 6 hours
     Route: 048
     Dates: start: 201009
  3. METHADONE [Suspect]
     Indication: PRODUCT USED FOR UNKNOWN INDICATION
     Route: 065
  4. OPANA ER [Concomitant]
     Indication: PAIN
     Route: 065
  5. SKELAXIN [Concomitant]
     Route: 048
  6. CELEXA [Concomitant]
     Indication: ANTIDEPRESSANT THERAPY
     Route: 065
  7. DIAZEPAM [Concomitant]
     Indication: ANTIDEPRESSANT THERAPY
     Route: 065

REACTIONS (4)
  - Rotator cuff syndrome [Recovered/Resolved]
  - Laboratory test abnormal [Not Recovered/Not Resolved]
  - Product quality issue [Recovered/Resolved]
  - Drug effect decreased [Not Recovered/Not Resolved]
